FAERS Safety Report 20961760 (Version 1)
Quarter: 2022Q2

REPORT INFORMATION
  Report Type: Spontaneous
  Country: US (occurrence: US)
  Receive Date: 20220615
  Receipt Date: 20220615
  Transmission Date: 20220721
  Serious: Yes (Hospitalization)
  Sender: FDA-Public Use
  Company Number: US-JAZZ-2022-US-012291

PATIENT
  Sex: Male
  Weight: 29.483 kg

DRUGS (2)
  1. EPIDIOLEX [Suspect]
     Active Substance: CANNABIDIOL
     Indication: Epilepsy
     Dosage: 4.4 MILLILITER
     Route: 048
     Dates: start: 201910
  2. EPIDIOLEX [Suspect]
     Active Substance: CANNABIDIOL
     Indication: Severe myoclonic epilepsy of infancy
     Dosage: 2.2 MILLILITER, BID
     Route: 048
     Dates: start: 201910

REACTIONS (2)
  - Hospitalisation [Unknown]
  - Fatigue [Unknown]
